FAERS Safety Report 7257380-1 (Version None)
Quarter: 2011Q1

REPORT INFORMATION
  Report Type: 
  Country: None (occurrence: None)
  Receive Date: 20110129
  Receipt Date: 20100729
  Transmission Date: 20110831
  Serious: No
  Sender: FDA-Public Use
  Company Number: US-ABBOTT-10P-163-0661410-00

PATIENT
  Sex: Female
  Weight: 70.37 kg

DRUGS (2)
  1. HUMIRA [Suspect]
     Indication: CROHN'S DISEASE
     Route: 058
     Dates: start: 20100401
  2. OXYCODONE [Concomitant]
     Indication: PAIN
     Dosage: EVERY FOUR TO SIX HRS AS NEEDED

REACTIONS (3)
  - NAUSEA [None]
  - FATIGUE [None]
  - VOMITING [None]
